FAERS Safety Report 8939900 (Version 2)
Quarter: 2012Q4

REPORT INFORMATION
  Report Type: 
  Country: US (occurrence: US)
  Receive Date: 20121203
  Receipt Date: 20121210
  Transmission Date: 20130627
  Serious: No
  Sender: FDA-Public Use
  Company Number: US-PFIZER INC-2012301987

PATIENT
  Age: 56 Year
  Sex: Female
  Weight: 52.15 kg

DRUGS (2)
  1. LYRICA [Suspect]
     Indication: PAIN
     Dosage: 75 mg, once at night
     Dates: start: 20121120, end: 20121120
  2. LORTAB [Concomitant]
     Indication: PAIN
     Dosage: [hydrocodone bitartrate 7.5mg]/[acetaminophen 500mg]

REACTIONS (5)
  - Vision blurred [Recovering/Resolving]
  - Palpitations [Recovering/Resolving]
  - Feeling abnormal [Recovering/Resolving]
  - Gait disturbance [Recovering/Resolving]
  - Coordination abnormal [Recovering/Resolving]
